FAERS Safety Report 6038623-9 (Version None)
Quarter: 2009Q1

REPORT INFORMATION
  Report Type: 
  Country: None (occurrence: None)
  Receive Date: 20090113
  Receipt Date: 20081105
  Transmission Date: 20090719
  Serious: No
  Sender: FDA-Public Use
  Company Number: 2008BM000214

PATIENT
  Age: 29 Year
  Sex: Male
  Weight: 106.5953 kg

DRUGS (1)
  1. KUVAN [Suspect]
     Indication: PHENYLKETONURIA
     Dosage: 20 MG/KG;1X;PO
     Route: 048
     Dates: start: 20081017, end: 20081017

REACTIONS (1)
  - NAUSEA [None]
